FAERS Safety Report 7389480-X (Version None)
Quarter: 2011Q2

REPORT INFORMATION
  Report Type: 
  Country: None (occurrence: None)
  Receive Date: 20110401
  Receipt Date: 20110322
  Transmission Date: 20111010
  Serious: Yes (Hospitalization, Other)
  Sender: FDA-Public Use
  Company Number: US-SANOFI-AVENTIS-2011SA017744

PATIENT
  Age: 82 Year
  Sex: Female

DRUGS (11)
  1. LISINOPRIL [Concomitant]
  2. COUMADIN [Concomitant]
  3. LANTUS [Concomitant]
  4. PLAVIX [Concomitant]
  5. NEXIUM [Concomitant]
  6. HUMALOG [Concomitant]
  7. INSULIN [Concomitant]
  8. MULTAQ [Suspect]
     Indication: ATRIAL FIBRILLATION
     Route: 048
     Dates: start: 20100501
  9. SYNTHROID [Concomitant]
  10. COREG [Concomitant]
  11. NEURONTIN [Concomitant]

REACTIONS (6)
  - DYSARTHRIA [None]
  - FLATULENCE [None]
  - VISUAL ACUITY REDUCED [None]
  - FATIGUE [None]
  - CORONARY ARTERY OCCLUSION [None]
  - PAIN [None]
